FAERS Safety Report 5282009-1 (Version None)
Quarter: 2007Q1

REPORT INFORMATION
  Report Type: 
  Country: None (occurrence: None)
  Receive Date: 20070330
  Receipt Date: 20070320
  Transmission Date: 20070707
  Serious: Yes (Congenital Anomaly, Other)
  Sender: FDA-Public Use
  Company Number: CH-ABBOTT-07P-151-0362594-00

PATIENT
  Weight: 2.915 kg

DRUGS (2)
  1. DEPAKENE [Suspect]
     Indication: DRUG EXPOSURE DURING PREGNANCY
  2. LAMOTRIGINE [Interacting]
     Indication: DRUG EXPOSURE DURING PREGNANCY

REACTIONS (8)
  - CONGENITAL EYELID MALFORMATION [None]
  - DRUG INTERACTION [None]
  - DYSKINESIA [None]
  - DYSMORPHISM [None]
  - FEEDING DISORDER NEONATAL [None]
  - GASTROOESOPHAGEAL REFLUX DISEASE [None]
  - HYPOTONIA NEONATAL [None]
  - VOMITING [None]
